FAERS Safety Report 7304263-4 (Version None)
Quarter: 2011Q1

REPORT INFORMATION
  Report Type: 
  Country: None (occurrence: None)
  Receive Date: 20110221
  Receipt Date: 20110208
  Transmission Date: 20110831
  Serious: Yes (Other)
  Sender: FDA-Public Use
  Company Number: PHHY2011CA10793

PATIENT

DRUGS (1)
  1. ALISKIREN [Suspect]
     Dosage: 150 MG, DAILY

REACTIONS (2)
  - TYPE 2 DIABETES MELLITUS [None]
  - URINE ALBUMIN/CREATININE RATIO INCREASED [None]
